FAERS Safety Report 13769978 (Version 1)
Quarter: 2017Q3

REPORT INFORMATION
  Report Type: Spontaneous
  Country: AU (occurrence: AU)
  Receive Date: 20170719
  Receipt Date: 20170719
  Transmission Date: 20171127
  Serious: Yes (Other)
  Sender: FDA-Public Use
  Company Number: AU-SA-2017SA129296

PATIENT
  Age: 99 Year
  Sex: Female

DRUGS (3)
  1. PLAQUENIL [Suspect]
     Active Substance: HYDROXYCHLOROQUINE SULFATE
     Route: 048
  2. HUMIRA [Suspect]
     Active Substance: ADALIMUMAB
     Route: 065
  3. ARAVA [Suspect]
     Active Substance: LEFLUNOMIDE
     Route: 048

REACTIONS (5)
  - Transfusion [Unknown]
  - Arthropathy [Unknown]
  - Alopecia [Unknown]
  - Drug ineffective [Unknown]
  - Madarosis [Unknown]
